FAERS Safety Report 5852130-5 (Version None)
Quarter: 2008Q3

REPORT INFORMATION
  Report Type: 
  Country: None (occurrence: None)
  Receive Date: 20080819
  Receipt Date: 20080819
  Transmission Date: 20090109
  Serious: Yes (Hospitalization)
  Sender: FDA-Public Use
  Company Number: None

PATIENT
  Age: 66 Year
  Sex: Male

DRUGS (17)
  1. LITHIUM CARBONATE [Suspect]
     Indication: BIPOLAR DISORDER
     Dosage: 900MG DAILY PO  (DURATION: CHRONIC (YEARS) )
     Route: 048
  2. SYNTHROID [Concomitant]
  3. LACTULOSE [Concomitant]
  4. LIPITOR [Concomitant]
  5. FOLATE [Concomitant]
  6. PRILOSEC [Concomitant]
  7. DEPAKOTE [Concomitant]
  8. THEOPHYLLINE [Concomitant]
  9. FISH OIL [Concomitant]
  10. LASIX [Concomitant]
  11. DITROPAN [Concomitant]
  12. DUONEB [Concomitant]
  13. THIAMINE HCL [Concomitant]
  14. SENNA [Concomitant]
  15. LEVAQUIN [Concomitant]
  16. ZEMPLAR [Concomitant]
  17. VITAMIN B-12 [Concomitant]

REACTIONS (3)
  - DEHYDRATION [None]
  - RENAL FAILURE ACUTE [None]
  - THERAPEUTIC AGENT TOXICITY [None]
